FAERS Safety Report 7102553-1 (Version None)
Quarter: 2010Q4

REPORT INFORMATION
  Report Type: 
  Country: None (occurrence: None)
  Receive Date: 20101115
  Receipt Date: 20101109
  Transmission Date: 20110411
  Serious: Yes (Other)
  Sender: FDA-Public Use
  Company Number: AU-B.I. PHARMACEUTICALS,INC./RIDGEFIELD-2010-AU-00782AU

PATIENT
  Sex: Female

DRUGS (2)
  1. MICARDIS [Suspect]
  2. ACE [Suspect]

REACTIONS (1)
  - PANCREATITIS [None]
